FAERS Safety Report 25044511 (Version 1)
Quarter: 2025Q1

REPORT INFORMATION
  Report Type: Spontaneous
  Country: HU (occurrence: HU)
  Receive Date: 20250306
  Receipt Date: 20250306
  Transmission Date: 20250408
  Serious: Yes (Other)
  Sender: ROCHE
  Company Number: HU-ROCHE-10000218297

PATIENT
  Age: 58 Year
  Sex: Male

DRUGS (1)
  1. AVASTIN [Suspect]
     Active Substance: BEVACIZUMAB
     Indication: Glioblastoma
     Route: 065

REACTIONS (6)
  - Headache [Not Recovered/Not Resolved]
  - Immobile [Unknown]
  - Muscle atrophy [Unknown]
  - Speech disorder [Unknown]
  - Aphasia [Unknown]
  - Brain oedema [Unknown]
